FAERS Safety Report 8089298-9 (Version None)
Quarter: 2012Q1

REPORT INFORMATION
  Report Type: 
  Country: None (occurrence: None)
  Receive Date: 20120128
  Receipt Date: 20110616
  Transmission Date: 20120608
  Serious: No
  Sender: FDA-Public Use
  Company Number: US-ABBOTT-11P-163-0733137-00

PATIENT
  Age: 47 Year
  Sex: Female

DRUGS (4)
  1. TRAVATAN [Concomitant]
     Indication: GLAUCOMA
     Dosage: EACH EYE
  2. HUMIRA [Suspect]
     Indication: PSORIATIC ARTHROPATHY
     Dates: start: 20090501
  3. ZOCOR [Concomitant]
     Indication: PRODUCT USED FOR UNKNOWN INDICATION
  4. COSOPT [Concomitant]
     Indication: GLAUCOMA
     Dosage: EACH EYE

REACTIONS (4)
  - BLOOD CHOLESTEROL INCREASED [None]
  - INJECTION SITE PRURITUS [None]
  - INJECTION SITE NODULE [None]
  - INJECTION SITE ERYTHEMA [None]
